FAERS Safety Report 25412730 (Version 4)
Quarter: 2025Q3

REPORT INFORMATION
  Report Type: Spontaneous
  Country: US (occurrence: US)
  Receive Date: 20250609
  Receipt Date: 20250729
  Transmission Date: 20251021
  Serious: No
  Sender: PFIZER
  Company Number: US-PFIZER INC-202500114409

PATIENT
  Age: 16 Year
  Sex: Male
  Weight: 67.12 kg

DRUGS (2)
  1. GENOTROPIN [Suspect]
     Active Substance: SOMATROPIN
     Indication: Growth hormone deficiency
     Dosage: 2.6 MG, 1X/DAY [EVERY NIGHT BEFORE BED]
     Route: 058
     Dates: start: 202410
  2. IBUPROFEN [Concomitant]
     Active Substance: IBUPROFEN
     Indication: Wisdom teeth removal

REACTIONS (3)
  - Drug dose omission by device [Unknown]
  - Device breakage [Unknown]
  - Device leakage [Unknown]

NARRATIVE: CASE EVENT DATE: 20250602
